FAERS Safety Report 24674021 (Version 1)
Quarter: 2024Q4

REPORT INFORMATION
  Report Type: Spontaneous
  Country: GB (occurrence: GB)
  Receive Date: 20241128
  Receipt Date: 20241128
  Transmission Date: 20250115
  Serious: Yes (Other)
  Sender: RANBAXY
  Company Number: GB-MHRA-EMIS-8873-00bbae04-36ea-447a-aa40-dd4fd5b5449e

PATIENT
  Age: 62 Year
  Sex: Male
  Weight: 92 kg

DRUGS (2)
  1. ALFUZOSIN [Suspect]
     Active Substance: ALFUZOSIN
     Indication: Product used for unknown indication
     Dosage: 1 DOSAGE FORM, QOD
     Route: 065
  2. Spikevax JN.1 COVID-19 mRNA Vaccine [Concomitant]
     Indication: Product used for unknown indication
     Dosage: 0.5 MILLILITER, 0.5 ML INTRAMUSCULAR
     Route: 030
     Dates: start: 20241011, end: 20241011

REACTIONS (1)
  - Erectile dysfunction [Unknown]
